FAERS Safety Report 14008008 (Version 1)
Quarter: 2017Q3

REPORT INFORMATION
  Report Type: Spontaneous
  Country: CA (occurrence: CA)
  Receive Date: 20170925
  Receipt Date: 20170925
  Transmission Date: 20171128
  Serious: Yes (Hospitalization, Disabling, Other)
  Sender: FDA-Public Use
  Company Number: CA-GLAXOSMITHKLINE-CA2017GSK145766

PATIENT
  Age: 84 Year
  Sex: Female
  Weight: 49 kg

DRUGS (2)
  1. RISPERDAL [Concomitant]
     Active Substance: RISPERIDONE
     Indication: PRODUCT USED FOR UNKNOWN INDICATION
     Dosage: UNK
  2. LAMICTAL [Suspect]
     Active Substance: LAMOTRIGINE
     Indication: SEIZURE
     Dosage: 75 MG, BID
     Route: 048

REACTIONS (4)
  - Ataxia [Recovered/Resolved]
  - Confusional state [Recovered/Resolved]
  - Encephalopathy [Recovered/Resolved]
  - Hyperreflexia [Recovered/Resolved]
